FAERS Safety Report 6060782-2 (Version None)
Quarter: 2009Q1

REPORT INFORMATION
  Report Type: 
  Country: None (occurrence: None)
  Receive Date: 20090129
  Receipt Date: 20090129
  Transmission Date: 20090719
  Serious: Yes (Other)
  Sender: FDA-Public Use
  Company Number: None

PATIENT
  Age: 66 Year
  Sex: Female
  Weight: 100.88 kg

DRUGS (2)
  1. METFORMIN HCL [Suspect]
     Indication: TYPE 2 DIABETES MELLITUS
     Dosage: 500 MG BID PO BEFORE 10/7/08
     Route: 048
  2. GLUCOPHAGE [Suspect]

REACTIONS (3)
  - ASTHENIA [None]
  - MYALGIA [None]
  - PRODUCT QUALITY ISSUE [None]
